FAERS Safety Report 24572085 (Version 1)
Quarter: 2024Q4

REPORT INFORMATION
  Report Type: Spontaneous
  Country: US (occurrence: None)
  Receive Date: 20241031
  Receipt Date: 20241031
  Transmission Date: 20250114
  Serious: Yes (Hospitalization)
  Sender: Public
  Company Number: None

PATIENT
  Age: 37 Year
  Sex: Male

DRUGS (1)
  1. PEMBROLIZUMAB [Suspect]
     Active Substance: PEMBROLIZUMAB
     Indication: Lymphoma
     Dosage: OTHER FREQUENCY : OTHER;?
     Route: 042
     Dates: start: 20230406, end: 20240530

REACTIONS (1)
  - Pneumonia [None]

NARRATIVE: CASE EVENT DATE: 20240630
